FAERS Safety Report 24462702 (Version 1)
Quarter: 2024Q4

REPORT INFORMATION
  Report Type: Spontaneous
  Country: PL (occurrence: PL)
  Receive Date: 20241018
  Receipt Date: 20241018
  Transmission Date: 20250115
  Serious: Yes (Hospitalization, Other)
  Sender: SANDOZ
  Company Number: PL-009507513-2205POL008597

PATIENT
  Age: 60 Year
  Sex: Male

DRUGS (15)
  1. CARBOPLATIN [Suspect]
     Active Substance: CARBOPLATIN
     Dosage: CYCLIC (3RD COURSE)
     Route: 065
     Dates: start: 2021, end: 20210312
  2. CARBOPLATIN [Suspect]
     Active Substance: CARBOPLATIN
     Indication: Non-small cell lung cancer
     Dosage: CYCLIC (SECOND CYCLE)
     Route: 065
     Dates: start: 20210308, end: 2021
  3. CARBOPLATIN [Suspect]
     Active Substance: CARBOPLATIN
     Dosage: CYCLIC (THE 4TH COURSE OF TREATMENT)
     Route: 065
     Dates: start: 20210716, end: 20210716
  4. CARBOPLATIN [Suspect]
     Active Substance: CARBOPLATIN
     Indication: Squamous cell carcinoma of lung
     Dosage: CYCLIC, (FIRST CYCLE)
     Route: 065
     Dates: start: 20210211, end: 2021
  5. CARBOPLATIN [Suspect]
     Active Substance: CARBOPLATIN
     Dosage: UNK
     Route: 065
  6. CISPLATIN [Suspect]
     Active Substance: CISPLATIN
     Indication: Non-small cell lung cancer
     Dosage: UNK
     Route: 065
  7. PACLITAXEL [Suspect]
     Active Substance: PACLITAXEL
     Indication: Squamous cell carcinoma of lung
     Dosage: (FIRST CYCLE)
     Route: 065
     Dates: start: 20210211, end: 2021
  8. PACLITAXEL [Suspect]
     Active Substance: PACLITAXEL
     Dosage: (SECOND CYCLE)
     Route: 065
     Dates: start: 20210308, end: 2021
  9. PACLITAXEL [Suspect]
     Active Substance: PACLITAXEL
     Dosage: CYCLIC (3RD COURSE)
     Route: 065
     Dates: start: 2021, end: 20210312
  10. PACLITAXEL [Suspect]
     Active Substance: PACLITAXEL
     Dosage: CYCLIC (THE 4TH COURSE OF TREATMENT)
     Route: 065
     Dates: start: 20210716, end: 20210716
  11. PEMBROLIZUMAB [Suspect]
     Active Substance: PEMBROLIZUMAB
     Dosage: CYCLIC (3RD COURSE)
     Route: 065
     Dates: start: 2021, end: 20210312
  12. PEMBROLIZUMAB [Suspect]
     Active Substance: PEMBROLIZUMAB
     Indication: Squamous cell carcinoma of lung
     Dosage: CYCLIC (FIRST CYCLE)
     Route: 065
     Dates: start: 20210211, end: 2021
  13. PEMBROLIZUMAB [Suspect]
     Active Substance: PEMBROLIZUMAB
     Indication: Non-small cell lung cancer
     Dosage: CYCLIC (SECOND CYCLE)
     Route: 065
     Dates: start: 20210308, end: 2021
  14. PEMBROLIZUMAB [Suspect]
     Active Substance: PEMBROLIZUMAB
     Dosage: CYCLIC (THE 4TH COURSE OF TREATMENT)
     Route: 065
     Dates: start: 20210716
  15. PEMETREXED [Suspect]
     Active Substance: PEMETREXED
     Indication: Non-small cell lung cancer
     Dosage: UNK
     Route: 065

REACTIONS (22)
  - Facial asymmetry [Recovered/Resolved]
  - Speech disorder [Recovered/Resolved]
  - Muscular weakness [Recovered/Resolved]
  - Ischaemic stroke [Recovered/Resolved]
  - Monoparesis [Recovering/Resolving]
  - Hypophagia [Recovering/Resolving]
  - General physical health deterioration [Recovering/Resolving]
  - Dehydration [Recovering/Resolving]
  - Asthenia [Recovering/Resolving]
  - Normocytic anaemia [Recovering/Resolving]
  - Lymphopenia [Recovering/Resolving]
  - Thrombocytopenia [Recovering/Resolving]
  - Neutropenia [Recovering/Resolving]
  - Atelectasis [Unknown]
  - Alanine aminotransferase increased [Unknown]
  - Leukopenia [Unknown]
  - Psychomotor hyperactivity [Recovering/Resolving]
  - COVID-19 pneumonia [Recovering/Resolving]
  - Nausea [Unknown]
  - Disease progression [Unknown]
  - Therapeutic product effect incomplete [Unknown]
  - Anaemia [Unknown]

NARRATIVE: CASE EVENT DATE: 20210101
